FAERS Safety Report 20992262 (Version 1)
Quarter: 2022Q2

REPORT INFORMATION
  Report Type: Report from Study
  Country: US (occurrence: US)
  Receive Date: 20220622
  Receipt Date: 20220622
  Transmission Date: 20220720
  Serious: No
  Sender: FDA-Public Use
  Company Number: US-NOVARTISTESTPH-NVSC2022US141227

PATIENT
  Age: 29 Year
  Sex: Female

DRUGS (2)
  1. KESIMPTA [Suspect]
     Active Substance: OFATUMUMAB
     Indication: Multiple sclerosis
     Dosage: 20 MG, OTHER (ONCE A WEEK FOR 3 WEEKS WITH A WEEK BREAK, THEN ONCE A MONTH THEREAFTER)
     Route: 058
     Dates: start: 20220616
  2. KESIMPTA [Suspect]
     Active Substance: OFATUMUMAB
     Indication: Multiple sclerosis
     Route: 065

REACTIONS (5)
  - Cold sweat [Unknown]
  - Nasal congestion [Unknown]
  - Headache [Unknown]
  - Back pain [Unknown]
  - Pyrexia [Unknown]

NARRATIVE: CASE EVENT DATE: 20220616
